FAERS Safety Report 8380742-6 (Version None)
Quarter: 2012Q2

REPORT INFORMATION
  Report Type: 
  Country: None (occurrence: None)
  Receive Date: 20120523
  Receipt Date: 20120518
  Transmission Date: 20120825
  Serious: No
  Sender: FDA-Public Use
  Company Number: US-PFIZER INC-2012121476

PATIENT
  Sex: Female
  Weight: 65.76 kg

DRUGS (1)
  1. LEVOXYL [Suspect]
     Indication: HYPOTHYROIDISM
     Dosage: 0.15 MG, DAILY
     Route: 048

REACTIONS (2)
  - RASH GENERALISED [None]
  - SKIN DISORDER [None]
